FAERS Safety Report 11589226 (Version 1)
Quarter: 2015Q4

REPORT INFORMATION
  Report Type: Spontaneous
  Country: FR (occurrence: FR)
  Receive Date: 20151002
  Receipt Date: 20151002
  Transmission Date: 20160304
  Serious: Yes (Hospitalization)
  Sender: FDA-Public Use
  Company Number: FR-PFIZER INC-2015323247

PATIENT
  Age: 52 Year
  Sex: Male

DRUGS (4)
  1. SPECIAFOLDINE [Concomitant]
     Active Substance: FOLIC ACID
  2. SERESTA [Concomitant]
     Active Substance: OXAZEPAM
  3. AMLOR [Suspect]
     Active Substance: AMLODIPINE BESYLATE
     Indication: HYPERTENSION
     Dosage: UNK
     Route: 048
     Dates: start: 20150730, end: 20150813
  4. AVLOCARDYL [Suspect]
     Active Substance: PROPRANOLOL HYDROCHLORIDE
     Indication: HYPERTENSION
     Dosage: UNK
     Route: 048
     Dates: start: 20150730, end: 20150811

REACTIONS (2)
  - Vascular purpura [Recovered/Resolved]
  - Arthralgia [Recovered/Resolved]

NARRATIVE: CASE EVENT DATE: 20150812
